FAERS Safety Report 6416926-3 (Version None)
Quarter: 2009Q4

REPORT INFORMATION
  Report Type: 
  Country: None (occurrence: None)
  Receive Date: 20091023
  Receipt Date: 20091012
  Transmission Date: 20100525
  Serious: Yes (Death, Hospitalization)
  Sender: FDA-Public Use
  Company Number: A-CH2009-26296

PATIENT
  Age: 64 Year
  Sex: Female
  Weight: 45 kg

DRUGS (1)
  1. TRACLEER [Suspect]
     Indication: SKIN ULCER
     Dosage: 125 MG, BID, ORAL; 62.5 MG, BID, ORAL
     Route: 048
     Dates: end: 20090623

REACTIONS (11)
  - CARDIAC TAMPONADE [None]
  - CENTRAL VENOUS PRESSURE INCREASED [None]
  - CONDITION AGGRAVATED [None]
  - HAEMOPTYSIS [None]
  - HYPOTENSION [None]
  - PAIN [None]
  - PERICARDIAL EFFUSION [None]
  - PERICARDITIS MALIGNANT [None]
  - PNEUMONIA [None]
  - PYREXIA [None]
  - VASCULITIS [None]
